FAERS Safety Report 22127884 (Version 1)
Quarter: 2023Q1

REPORT INFORMATION
  Report Type: Spontaneous
  Country: BR (occurrence: BR)
  Receive Date: 20230323
  Receipt Date: 20230323
  Transmission Date: 20230418
  Serious: Yes (Other)
  Sender: FDA-Public Use
  Company Number: BR-CELLTRION INC.-2023BR005934

PATIENT

DRUGS (2)
  1. INFLIXIMAB [Suspect]
     Active Substance: INFLIXIMAB
     Indication: Crohn^s disease
     Dosage: UNK
     Route: 042
     Dates: start: 20220502
  2. INFLIXIMAB [Suspect]
     Active Substance: INFLIXIMAB
     Dosage: DISTANCES OF THE INFUSIONS WERE INCREASING (EVERY 3 MONTHS; EVERY 4 MONTHS)
     Route: 042

REACTIONS (2)
  - Tuberculosis [Unknown]
  - Off label use [Unknown]
